FAERS Safety Report 6399810-3 (Version None)
Quarter: 2009Q4

REPORT INFORMATION
  Report Type: 
  Country: None (occurrence: None)
  Receive Date: 20091009
  Receipt Date: 20091009
  Transmission Date: 20100525
  Serious: No
  Sender: FDA-Public Use
  Company Number: None

PATIENT
  Sex: Female

DRUGS (3)
  1. TRETINOIN [Suspect]
     Indication: ACNE CYSTIC
     Dosage: QHS
     Dates: start: 20070101
  2. BREVOXYL [Concomitant]
  3. ROSANIL [Concomitant]

REACTIONS (1)
  - DRUG INEFFECTIVE [None]
